FAERS Safety Report 9452442 (Version 2)
Quarter: 2013Q3

REPORT INFORMATION
  Report Type: Report from Study
  Country: US (occurrence: US)
  Receive Date: 20130812
  Receipt Date: 20130830
  Transmission Date: 20140515
  Serious: Yes (Hospitalization)
  Sender: FDA-Public Use
  Company Number: US-CELGENEUS-163-21660-13080365

PATIENT
  Age: 43 Year
  Sex: Male
  Weight: 68.7 kg

DRUGS (22)
  1. ABRAXANE [Suspect]
     Indication: SQUAMOUS CELL CARCINOMA OF HEAD AND NECK
     Route: 065
     Dates: start: 20130429, end: 20130610
  2. ABRAXANE [Suspect]
     Route: 065
     Dates: start: 20130722
  3. CISPLATIN [Suspect]
     Indication: SQUAMOUS CELL CARCINOMA OF HEAD AND NECK
     Route: 065
     Dates: start: 20130429
  4. CISPLATIN [Suspect]
     Route: 065
     Dates: start: 20130722
  5. 5-FU [Suspect]
     Indication: SQUAMOUS CELL CARCINOMA OF HEAD AND NECK
     Route: 065
     Dates: start: 20130429
  6. AMITRIPTYLINE [Concomitant]
     Indication: PRODUCT USED FOR UNKNOWN INDICATION
     Dosage: 25 MILLIGRAM
     Route: 048
     Dates: start: 20130628
  7. CLONAZEPAM [Concomitant]
     Indication: ANXIETY
     Dosage: 1 MILLIGRAM
     Route: 048
     Dates: start: 20130422
  8. DEXAMETHASONE [Concomitant]
     Indication: PRODUCT USED FOR UNKNOWN INDICATION
     Dosage: 8 MILLIGRAM
     Route: 048
     Dates: start: 20130422
  9. LIDOCAINE-PRILOCAINE [Concomitant]
     Indication: PAIN
     Route: 061
     Dates: start: 20130422
  10. MIDODRINE HCL [Concomitant]
     Indication: ORTHOSTATIC HYPOTENSION
     Dosage: 30 MILLIGRAM
     Route: 048
     Dates: start: 20130528, end: 20130701
  11. NEUPOGEN [Concomitant]
     Indication: PRODUCT USED FOR UNKNOWN INDICATION
     Dosage: 480MCG/0.8ML
     Route: 050
     Dates: start: 20130521
  12. ONDANSETRON [Concomitant]
     Indication: NAUSEA
     Route: 048
     Dates: start: 20130422
  13. ONDANSETRON [Concomitant]
     Indication: VOMITING
     Dosage: 16 MILLIGRAM
     Route: 041
     Dates: start: 20130730, end: 20130731
  14. TYLENOL [Concomitant]
     Indication: PYREXIA
     Route: 065
     Dates: start: 20130729
  15. MAGIC MOUTHWASH [Concomitant]
     Indication: MUCOSAL INFLAMMATION
     Route: 065
  16. SALINE [Concomitant]
     Indication: FLUID REPLACEMENT
     Dosage: 100ML/HR
     Route: 065
     Dates: start: 2013
  17. ENSURE [Concomitant]
     Indication: PRODUCT USED FOR UNKNOWN INDICATION
     Dosage: 6 CANS
     Route: 048
     Dates: start: 20130722
  18. FENTANYL [Concomitant]
     Indication: PAIN
     Dosage: 16.6667 MICROGRAM
     Route: 061
     Dates: start: 20130730
  19. OXYCODONE [Concomitant]
     Indication: PAIN
     Dosage: 5 MG/ML AT 15-20 ML
     Route: 048
     Dates: start: 20130731
  20. FOLIC ACID [Concomitant]
     Indication: NEUROPATHY PERIPHERAL
     Dosage: 1 MILLIGRAM
     Route: 048
     Dates: start: 20130730, end: 20130731
  21. MAGNESIUM SULFATE [Concomitant]
     Indication: HYPOMAGNESAEMIA
     Route: 041
     Dates: start: 20130730, end: 20130731
  22. MAALOX/DIPHENHYDRAMINE [Concomitant]
     Indication: ORAL PAIN
     Dosage: 60 MILLILITER
     Route: 048
     Dates: start: 20130730, end: 20130731

REACTIONS (2)
  - Syncope [Recovered/Resolved]
  - Diarrhoea [Recovered/Resolved]
